FAERS Safety Report 7395861-0 (Version None)
Quarter: 2011Q2

REPORT INFORMATION
  Report Type: 
  Country: None (occurrence: None)
  Receive Date: 20110405
  Receipt Date: 20110309
  Transmission Date: 20111010
  Serious: No
  Sender: FDA-Public Use
  Company Number: US-BAYER-2011-022868

PATIENT
  Sex: Female
  Weight: 61.224 kg

DRUGS (1)
  1. ALEVE (CAPLET) [Suspect]
     Indication: BACK PAIN
     Dosage: 220 MG, PRN, BOTTLE COUNT 100S
     Route: 048
     Dates: start: 20110307, end: 20110307

REACTIONS (1)
  - BACK PAIN [None]
